FAERS Safety Report 4587687-8 (Version None)
Quarter: 2005Q1

REPORT INFORMATION
  Report Type: 
  Country: None (occurrence: None)
  Receive Date: 20050215
  Receipt Date: 20050127
  Transmission Date: 20050727
  Serious: Yes (Hospitalization)
  Sender: FDA-Public Use
  Company Number: F01200500167

PATIENT
  Age: 52 Year
  Sex: Male

DRUGS (7)
  1. OXALIPLATIN [Suspect]
     Indication: COLORECTAL CANCER METASTATIC
     Dosage: 290 MG Q3W - INTRAVENOUS NOS
     Route: 042
     Dates: start: 20050110, end: 20050110
  2. CAPECITABINE - TABLET - 2300 MG [Suspect]
     Dosage: 2300 MG (1000 MG/M2 TWICE A DAY FOR 2 WEEKS, Q3W) - ORAL
     Route: 048
     Dates: start: 20050110, end: 20050110
  3. BEVACIZUMAB OR PLACEBO - SOLUTION - 1 UNIT [Suspect]
     Dosage: 1 UNIT Q3W - INTRAVENOUS NOS
     Route: 042
     Dates: start: 20050110, end: 20050110
  4. FAMOTIDINE [Concomitant]
  5. DOCUSATE SODIUM [Concomitant]
  6. OXYCODONE HCL [Concomitant]
  7. ACETAMINOPHEN/OXYCODONE HCL [Concomitant]

REACTIONS (6)
  - DEEP VEIN THROMBOSIS [None]
  - DRUG HYPERSENSITIVITY [None]
  - HAEMATEMESIS [None]
  - LARYNGOSPASM [None]
  - OROPHARYNGEAL SPASM [None]
  - TACHYCARDIA [None]
